FAERS Safety Report 16624537 (Version 1)
Quarter: 2019Q3

REPORT INFORMATION
  Report Type: Spontaneous
  Country: US (occurrence: US)
  Receive Date: 20190723
  Receipt Date: 20190723
  Transmission Date: 20191004
  Serious: Yes (Other)
  Sender: FDA-Public Use
  Company Number: None

PATIENT
  Age: 74 Year
  Sex: Male
  Weight: 69.3 kg

DRUGS (17)
  1. CAPECITABINE. [Suspect]
     Active Substance: CAPECITABINE
     Indication: MALIGNANT NEOPLASM OF AMPULLA OF VATER
     Route: 048
     Dates: start: 20190425, end: 20190615
  2. FENOFIBRATE NANOCRYSTALLIZED [Concomitant]
  3. ONDANSETRON [Concomitant]
     Active Substance: ONDANSETRON
  4. POTASSIUM CHLORIDE. [Concomitant]
     Active Substance: POTASSIUM CHLORIDE
  5. FINASTERIDE. [Concomitant]
     Active Substance: FINASTERIDE
  6. LEVETIRACETAM. [Concomitant]
     Active Substance: LEVETIRACETAM
  7. DOCUSATE [Concomitant]
     Active Substance: DOCUSATE
  8. HYDROCHLOROTHIAZIDE. [Concomitant]
     Active Substance: HYDROCHLOROTHIAZIDE
  9. ZOLPIDEM [Concomitant]
     Active Substance: ZOLPIDEM TARTRATE
  10. SIMVASTATIN. [Concomitant]
     Active Substance: SIMVASTATIN
  11. ZENPEP [Concomitant]
     Active Substance: PANCRELIPASE AMYLASE\PANCRELIPASE LIPASE\PANCRELIPASE PROTEASE
  12. GLIMEPIRIDE. [Concomitant]
     Active Substance: GLIMEPIRIDE
  13. PANTOPRAZOLE [Concomitant]
     Active Substance: PANTOPRAZOLE
  14. ZARXIO [Concomitant]
     Active Substance: FILGRASTIM-SNDZ
  15. DILTAZEM [Concomitant]
  16. TIMOLOL MALEATE EYE GEL [Concomitant]
  17. ASPIRIN. [Concomitant]
     Active Substance: ASPIRIN

REACTIONS (4)
  - Abdominal discomfort [None]
  - Diarrhoea [None]
  - Palmar-plantar erythrodysaesthesia syndrome [None]
  - Fatigue [None]

NARRATIVE: CASE EVENT DATE: 20190619
